FAERS Safety Report 8511084-3 (Version None)
Quarter: 2012Q3

REPORT INFORMATION
  Report Type: 
  Country: None (occurrence: None)
  Receive Date: 20120716
  Receipt Date: 20120706
  Transmission Date: 20120928
  Serious: Yes (Hospitalization)
  Sender: FDA-Public Use
  Company Number: US-COVIDIEN/TYCO HEALTHCARE/MALLINCKRODT-T201202747

PATIENT
  Age: 55 Year
  Sex: Male

DRUGS (1)
  1. EXALGO [Suspect]
     Dosage: 16 MG, QID

REACTIONS (1)
  - OVERDOSE [None]
